FAERS Safety Report 8493490-9 (Version None)
Quarter: 2012Q2

REPORT INFORMATION
  Report Type: 
  Country: None (occurrence: None)
  Receive Date: 20120402
  Receipt Date: 20090807
  Transmission Date: 20120825
  Serious: Yes (Other)
  Sender: FDA-Public Use
  Company Number: PHEH2009US09008

PATIENT
  Sex: Male

DRUGS (4)
  1. EXFORGE [Suspect]
     Dosage: 10/160MG
  2. LASIX [Concomitant]
  3. ANTIHYPERTENSIVES (NO INGREDIENTS/SUBSTANCES) [Concomitant]
  4. TEKTURNA [Suspect]
     Dosage: 300/12.5MG

REACTIONS (2)
  - OEDEMA PERIPHERAL [None]
  - SWELLING [None]
